FAERS Safety Report 6959515-4 (Version None)
Quarter: 2010Q3

REPORT INFORMATION
  Report Type: 
  Country: None (occurrence: None)
  Receive Date: 20100831
  Receipt Date: 20100826
  Transmission Date: 20110219
  Serious: Yes (Death)
  Sender: FDA-Public Use
  Company Number: JP-BRISTOL-MYERS SQUIBB COMPANY-15256811

PATIENT
  Age: 53 Year
  Weight: 71 kg

DRUGS (2)
  1. CISPLATIN [Suspect]
     Indication: CERVIX CARCINOMA STAGE IV
     Route: 042
     Dates: start: 20100811, end: 20100825
  2. S-1 [Suspect]
     Indication: CERVIX CARCINOMA STAGE IV
     Dosage: TOTAL DOSE IS 120MG
     Route: 048
     Dates: start: 20100811, end: 20100824

REACTIONS (1)
  - ANAEMIA [None]
